FAERS Safety Report 7677234-6 (Version None)
Quarter: 2011Q3

REPORT INFORMATION
  Report Type: 
  Country: None (occurrence: None)
  Receive Date: 20110810
  Receipt Date: 20110810
  Transmission Date: 20111222
  Serious: Yes (Hospitalization)
  Sender: FDA-Public Use
  Company Number: None

PATIENT
  Sex: Female
  Weight: 49 kg

DRUGS (4)
  1. VANCOMYCIN [Suspect]
     Indication: PYREXIA
     Dosage: IV RATE 150ML/HR
     Route: 042
     Dates: start: 20080507
  2. HEPARIN [Concomitant]
  3. EPOGEN [Concomitant]
  4. ZEMPLAR [Concomitant]

REACTIONS (4)
  - INFUSION RELATED REACTION [None]
  - RESTLESSNESS [None]
  - HYPOTENSION [None]
  - DYSPNOEA [None]
